FAERS Safety Report 6899102-X (Version None)
Quarter: 2010Q3

REPORT INFORMATION
  Report Type: 
  Country: None (occurrence: None)
  Receive Date: 20100802
  Receipt Date: 20080226
  Transmission Date: 20110219
  Serious: Yes (Hospitalization)
  Sender: FDA-Public Use
  Company Number: US-PFIZER INC-2008002201

PATIENT

DRUGS (1)
  1. LYRICA [Suspect]

REACTIONS (2)
  - CONFUSIONAL STATE [None]
  - MUSCLE TWITCHING [None]
